FAERS Safety Report 11143274 (Version 1)
Quarter: 2015Q2

REPORT INFORMATION
  Report Type: Spontaneous
  Country: US (occurrence: US)
  Receive Date: 20150526
  Receipt Date: 20150526
  Transmission Date: 20150821
  Serious: No
  Sender: FDA-Public Use
  Company Number: US-NOVEN PHARMACEUTICALS, INC.-US2015000222

PATIENT
  Age: 50 Year
  Sex: Female

DRUGS (4)
  1. MINIVELLE [Suspect]
     Active Substance: ESTRADIOL
     Indication: NIGHT SWEATS
  2. PROGESTERONE. [Concomitant]
     Active Substance: PROGESTERONE
  3. VITAMINS [Concomitant]
     Active Substance: VITAMINS
  4. MINIVELLE [Suspect]
     Active Substance: ESTRADIOL
     Indication: HOT FLUSH
     Dosage: 0.05 MG, UNK
     Route: 062
     Dates: start: 20150425

REACTIONS (1)
  - Headache [Not Recovered/Not Resolved]

NARRATIVE: CASE EVENT DATE: 20150425
